FAERS Safety Report 4320553-1 (Version None)
Quarter: 2004Q1

REPORT INFORMATION
  Report Type: 
  Country: None (occurrence: None)
  Receive Date: 20040315
  Receipt Date: 20040115
  Transmission Date: 20041129
  Serious: Yes (Hospitalization)
  Sender: FDA-Public Use
  Company Number: 2003179042US

PATIENT
  Sex: Female

DRUGS (1)
  1. BEXTRA [Suspect]
     Dosage: 20 MG TID ORAL
     Route: 048
     Dates: start: 20030921

REACTIONS (2)
  - BODY TEMPERATURE INCREASED [None]
  - RASH [None]
